FAERS Safety Report 17884702 (Version 2)
Quarter: 2020Q2

REPORT INFORMATION
  Report Type: Spontaneous
  Country: CN (occurrence: CN)
  Receive Date: 20200611
  Receipt Date: 20200616
  Transmission Date: 20200714
  Serious: Yes (Hospitalization, Other)
  Sender: FDA-Public Use
  Company Number: CN-ASTRAZENECA-2020SE73827

PATIENT
  Sex: Female

DRUGS (3)
  1. ONGLYZA [Suspect]
     Active Substance: SAXAGLIPTIN HYDROCHLORIDE
     Route: 048
  2. METFORMIN [Concomitant]
     Active Substance: METFORMIN HYDROCHLORIDE
     Route: 048
  3. ACARBOSE. [Concomitant]
     Active Substance: ACARBOSE

REACTIONS (3)
  - Drug hypersensitivity [Recovered/Resolved]
  - Anaphylactic shock [Unknown]
  - Rash erythematous [Recovered/Resolved]
